FAERS Safety Report 20904342 (Version 1)
Quarter: 2022Q2

REPORT INFORMATION
  Report Type: Spontaneous
  Country: PL (occurrence: PL)
  Receive Date: 20220602
  Receipt Date: 20220602
  Transmission Date: 20220721
  Serious: Yes (Hospitalization)
  Sender: FDA-Public Use
  Company Number: PL-CELGENE-POL-20211203087

PATIENT
  Age: 73 Year
  Sex: Male
  Weight: 82 kg

DRUGS (31)
  1. AZACITIDINE [Suspect]
     Active Substance: AZACITIDINE
     Indication: Myelodysplastic syndrome
     Dosage: 74.61 MILLIGRAM
     Route: 058
     Dates: start: 20201216
  2. VENETOCLAX [Suspect]
     Active Substance: VENETOCLAX
     Indication: Myelodysplastic syndrome
     Dosage: FREQUENCY TEXT: NOT PROVIDED
     Route: 048
  3. PLAVIX [Concomitant]
     Active Substance: CLOPIDOGREL BISULFATE
     Indication: Coronary artery disease
     Dosage: 1 IN 1 D
     Route: 048
  4. PLAVIX [Concomitant]
     Active Substance: CLOPIDOGREL BISULFATE
     Dosage: 75 MILLIGRAM
     Route: 048
     Dates: start: 20210911
  5. BIOSOTAL [Concomitant]
     Indication: Coronary artery disease
     Dosage: 40 MILLIGRAM
     Route: 048
     Dates: start: 2017
  6. OMEPRAZOLE SODIUM [Concomitant]
     Active Substance: OMEPRAZOLE SODIUM
     Indication: Prophylaxis against gastrointestinal ulcer
     Dosage: 1 IN 1 D
     Route: 048
  7. OMEPRAZOLE SODIUM [Concomitant]
     Active Substance: OMEPRAZOLE SODIUM
     Dosage: 20 MILLIGRAM
     Route: 048
     Dates: start: 20201231
  8. RAMIPRIL [Concomitant]
     Active Substance: RAMIPRIL
     Indication: Hypertension
     Dosage: 1 IN 1 D
     Route: 048
  9. RAMIPRIL [Concomitant]
     Active Substance: RAMIPRIL
     Dosage: 5 MILLIGRAM
     Route: 048
     Dates: start: 20201231
  10. ASMAG [Concomitant]
     Indication: Prophylaxis
     Dosage: 1000 MILLIGRAM
     Route: 048
     Dates: start: 20210102
  11. POTASSIUM CHLORIDE [Concomitant]
     Active Substance: POTASSIUM CHLORIDE
     Indication: Prophylaxis
     Dosage: 1250 MILLIGRAM
     Route: 048
     Dates: start: 20200107
  12. ONDANSETRON [Concomitant]
     Active Substance: ONDANSETRON
     Indication: Premedication
     Dosage: 2 IN 1 D
     Route: 048
     Dates: start: 20201217, end: 20201222
  13. ONDANSETRON [Concomitant]
     Active Substance: ONDANSETRON
     Dosage: 2 IN 1 D
     Route: 048
     Dates: start: 20210118, end: 20210122
  14. ONDANSETRON [Concomitant]
     Active Substance: ONDANSETRON
     Dosage: 2 IN 1 D
     Route: 048
     Dates: start: 20210125, end: 20210126
  15. ONDANSETRON [Concomitant]
     Active Substance: ONDANSETRON
     Dosage: 2 IN 1 D
     Route: 048
     Dates: start: 20210126, end: 20210831
  16. ONDANSETRON [Concomitant]
     Active Substance: ONDANSETRON
     Dosage: 2 IN 1 D
     Route: 048
     Dates: start: 20210928, end: 20211002
  17. ONDANSETRON [Concomitant]
     Active Substance: ONDANSETRON
     Dosage: 2 IN 1 D
     Route: 048
     Dates: start: 20211005, end: 20211006
  18. ONDANSETRON [Concomitant]
     Active Substance: ONDANSETRON
     Dosage: 2 IN 1 D
     Route: 048
     Dates: start: 20211102, end: 20211106
  19. ONDANSETRON [Concomitant]
     Active Substance: ONDANSETRON
     Dosage: 2 IN 1 D
     Route: 048
     Dates: start: 20211109, end: 20211110
  20. PREDNISONE [Concomitant]
     Active Substance: PREDNISONE
     Indication: Acute febrile neutrophilic dermatosis
     Dosage: 10 MILLIGRAM
     Route: 048
     Dates: start: 20201231
  21. Tialorid [Concomitant]
     Indication: Hypertension
     Dosage: 55 MILLIGRAM
     Route: 048
     Dates: start: 20210105
  22. VITAMIN D [Concomitant]
     Active Substance: VITAMIN D NOS
     Indication: Osteoporosis prophylaxis
     Dosage: 500 IU (INTERNATIONAL UNIT)
     Route: 048
     Dates: start: 20201231
  23. Calperos [Concomitant]
     Indication: Osteoporosis prophylaxis
     Dosage: 1000 MILLIGRAM
     Route: 048
     Dates: start: 20210111
  24. BISOPROLOL [Concomitant]
     Active Substance: BISOPROLOL
     Indication: Coronary artery disease
     Dosage: 2.5 MILLIGRAM
     Route: 048
     Dates: start: 20210911
  25. LISINOPRIL [Concomitant]
     Active Substance: LISINOPRIL
     Indication: Hypertension
     Dosage: 2.5 MILLIGRAM
     Route: 048
     Dates: start: 20210911
  26. LISINOPRIL [Concomitant]
     Active Substance: LISINOPRIL
     Indication: Myocardial infarction
  27. ATORVASTATIN [Concomitant]
     Active Substance: ATORVASTATIN
     Indication: Myocardial infarction
     Dosage: 80 MILLIGRAM
     Route: 048
     Dates: start: 20210911
  28. Avamina SR [Concomitant]
     Indication: Diabetes mellitus
     Dosage: 500 MILLIGRAM
     Route: 048
     Dates: start: 20210911
  29. ACARD [Concomitant]
     Indication: Coronary artery disease
     Dosage: 75 MILLIGRAM
     Route: 048
     Dates: start: 20210911
  30. ACARD [Concomitant]
     Indication: Myocardial infarction
  31. FILGRASTIM [Concomitant]
     Active Substance: FILGRASTIM
     Indication: Neutropenia
     Route: 058
     Dates: start: 20210226

REACTIONS (1)
  - COVID-19 [Recovered/Resolved]

NARRATIVE: CASE EVENT DATE: 20211120
